FAERS Safety Report 4760090-3 (Version None)
Quarter: 2005Q3

REPORT INFORMATION
  Report Type: 
  Country: None (occurrence: None)
  Receive Date: 20050902
  Receipt Date: 20050222
  Transmission Date: 20060218
  Serious: No
  Sender: FDA-Public Use
  Company Number: US-GLAXOSMITHKLINE-A0546719A

PATIENT
  Age: 52 Year
  Sex: Male
  Weight: 83 kg

DRUGS (13)
  1. REQUIP [Suspect]
     Indication: PARKINSON'S DISEASE
     Dosage: 2MG PER DAY
     Route: 048
     Dates: start: 20050101
  2. LEXIVA [Concomitant]
     Indication: HIV INFECTION
     Dosage: 700MG TWICE PER DAY
     Route: 048
     Dates: start: 20050126, end: 20050129
  3. WELLBUTRIN SR [Concomitant]
     Indication: DEPRESSION
     Dosage: 150MG TWICE PER DAY
     Route: 048
     Dates: start: 20020116, end: 20050129
  4. SOMA [Concomitant]
     Dosage: 350MG AS REQUIRED
     Route: 048
     Dates: start: 20020821, end: 20050129
  5. ALLEGRA [Concomitant]
     Indication: MULTIPLE ALLERGIES
     Dosage: 180MG AS REQUIRED
     Route: 048
     Dates: start: 20020116, end: 20050129
  6. NAPROSYN [Concomitant]
     Indication: PAIN
     Dosage: 500MG TWICE PER DAY
     Route: 048
     Dates: start: 20020116, end: 20050129
  7. CLARITIN [Concomitant]
     Indication: MULTIPLE ALLERGIES
     Dosage: 10MG AS REQUIRED
     Route: 048
     Dates: start: 20040602, end: 20050129
  8. SELEGILINE HCL [Concomitant]
     Indication: PARKINSONISM
     Dosage: 25MG TWICE PER DAY
     Route: 048
     Dates: start: 20050126, end: 20050129
  9. VIAGRA [Concomitant]
     Route: 048
     Dates: start: 20020116, end: 20050129
  10. NORVIR [Concomitant]
     Indication: HIV INFECTION
     Dosage: 400MG TWICE PER DAY
     Route: 048
     Dates: start: 20030924, end: 20050129
  11. VIREAD [Concomitant]
     Indication: HIV INFECTION
     Dosage: 300MG PER DAY
     Route: 048
     Dates: start: 20020501, end: 20050129
  12. EPIVIR [Concomitant]
     Indication: HIV INFECTION
     Dosage: 300MG PER DAY
     Route: 048
     Dates: start: 19970801, end: 20050129
  13. IMODIUM [Concomitant]
     Dosage: 2MG AS REQUIRED
     Route: 048
     Dates: start: 19970801

REACTIONS (6)
  - HEADACHE [None]
  - HYPOAESTHESIA [None]
  - INFLUENZA LIKE ILLNESS [None]
  - NAUSEA [None]
  - PARAESTHESIA [None]
  - VOMITING [None]
